FAERS Safety Report 4539690-1 (Version None)
Quarter: 2004Q4

REPORT INFORMATION
  Report Type: 
  Country: None (occurrence: None)
  Receive Date: 20041228
  Receipt Date: 20030908
  Transmission Date: 20050328
  Serious: Yes (Death, Hospitalization, Disabling, Other)
  Sender: FDA-Public Use
  Company Number: US-MERCK-0309USA00838

PATIENT
  Age: 77 Year
  Sex: Male
  Weight: 109 kg

DRUGS (11)
  1. VIOXX [Suspect]
     Indication: OSTEOARTHRITIS
     Route: 048
     Dates: start: 20010101, end: 20011001
  2. VIOXX [Suspect]
     Route: 048
     Dates: start: 20021121, end: 20021203
  3. VIOXX [Suspect]
     Route: 048
     Dates: start: 20030204, end: 20030218
  4. VIOXX [Suspect]
     Indication: PAIN
     Route: 048
     Dates: start: 20010101, end: 20011001
  5. VIOXX [Suspect]
     Route: 048
     Dates: start: 20021121, end: 20021203
  6. VIOXX [Suspect]
     Route: 048
     Dates: start: 20030204, end: 20030218
  7. ASPIRIN [Concomitant]
     Route: 065
  8. LEVOTHYROXINE SODIUM [Concomitant]
     Route: 065
  9. LEVOTHYROXINE SODIUM [Concomitant]
     Route: 065
  10. GLUCOSAMINE [Concomitant]
     Route: 065
  11. HYTRIN [Concomitant]
     Route: 065

REACTIONS (38)
  - ABDOMINAL SYMPTOM [None]
  - ATONIC URINARY BLADDER [None]
  - ATRIAL FIBRILLATION [None]
  - BRONCHOPNEUMONIA [None]
  - BURNS SECOND DEGREE [None]
  - CARDIAC FAILURE CONGESTIVE [None]
  - CEREBRAL ATROPHY [None]
  - CEREBRAL INFARCTION [None]
  - CEREBROVASCULAR ACCIDENT [None]
  - CONFUSIONAL STATE [None]
  - CORONARY ARTERY DISEASE [None]
  - DEAFNESS [None]
  - DEAFNESS NEUROSENSORY [None]
  - DEATH [None]
  - DELIRIUM [None]
  - DEMENTIA [None]
  - DEPRESSION [None]
  - DRUG INEFFECTIVE [None]
  - DYSURIA [None]
  - ECZEMA [None]
  - EMOTIONAL DISTRESS [None]
  - GENERAL PHYSICAL HEALTH DETERIORATION [None]
  - HAEMATURIA [None]
  - HAEMORRHAGIC STROKE [None]
  - HALLUCINATION, VISUAL [None]
  - HEART RATE IRREGULAR [None]
  - INCONTINENCE [None]
  - INTENTIONAL SELF-INJURY [None]
  - LOBAR PNEUMONIA [None]
  - MITRAL VALVE INCOMPETENCE [None]
  - MITRAL VALVE STENOSIS [None]
  - MOOD DISORDER DUE TO A GENERAL MEDICAL CONDITION [None]
  - MYOCARDIAL INFARCTION [None]
  - MYOFASCIAL PAIN SYNDROME [None]
  - NEUROGENIC BLADDER [None]
  - PNEUMONIA [None]
  - STAPHYLOCOCCAL INFECTION [None]
  - TRICUSPID VALVE INCOMPETENCE [None]
